FAERS Safety Report 10282002 (Version 2)
Quarter: 2014Q3

REPORT INFORMATION
  Report Type: Spontaneous
  Country: IT (occurrence: IT)
  Receive Date: 20140707
  Receipt Date: 20140707
  Transmission Date: 20150326
  Serious: Yes (Other)
  Sender: FDA-Public Use
  Company Number: IT-ELI_LILLY_AND_COMPANY-IT201405009204

PATIENT
  Age: 81 Year
  Sex: Female

DRUGS (10)
  1. HUMALOG [Suspect]
     Active Substance: INSULIN LISPRO
     Dosage: 14 IU, BID
     Route: 058
     Dates: start: 20120101, end: 20130711
  2. RYTMONORM [Concomitant]
     Active Substance: PROPAFENONE
     Route: 048
  3. EUTIROX [Concomitant]
     Active Substance: LEVOTHYROXINE SODIUM
     Route: 048
  4. LANTUS [Suspect]
     Active Substance: INSULIN GLARGINE
     Indication: TYPE 2 DIABETES MELLITUS
     Dosage: 14 IU, QD
     Route: 058
     Dates: start: 20120101, end: 20130711
  5. REPAGLINIDE. [Suspect]
     Active Substance: REPAGLINIDE
     Indication: TYPE 2 DIABETES MELLITUS
     Dosage: 1 DF, QD
     Route: 048
     Dates: start: 20120101, end: 20130711
  6. LANSOX [Concomitant]
     Active Substance: LANSOPRAZOLE
     Route: 048
  7. HUMALOG [Suspect]
     Active Substance: INSULIN LISPRO
     Indication: TYPE 2 DIABETES MELLITUS
     Dosage: 12 IU, EACH MORNING
     Route: 058
     Dates: start: 20120101, end: 20130711
  8. VALPRESSION [Concomitant]
     Active Substance: VALSARTAN
     Route: 048
  9. RIFADIN [Concomitant]
     Active Substance: RIFAMPIN
     Route: 048
  10. ASCRIPTIN [Concomitant]
     Active Substance: ASPIRIN
     Route: 048

REACTIONS (3)
  - Malaise [Recovering/Resolving]
  - Hypoglycaemia [Recovering/Resolving]
  - Cold sweat [Recovering/Resolving]

NARRATIVE: CASE EVENT DATE: 20130711
